FAERS Safety Report 19514700 (Version 2)
Quarter: 2021Q3

REPORT INFORMATION
  Report Type: Spontaneous
  Country: CA (occurrence: CA)
  Receive Date: 20210709
  Receipt Date: 20210928
  Transmission Date: 20211014
  Serious: Yes (Life-Threatening, Hospitalization, Other)
  Sender: FDA-Public Use
  Company Number: CA-SA-2021SA226707

PATIENT
  Age: 50 Year
  Sex: Male

DRUGS (9)
  1. DIPHENHYDRAMINE. [Suspect]
     Active Substance: DIPHENHYDRAMINE
     Indication: ANGIOEDEMA
  2. VENLAFAXINE [Concomitant]
     Active Substance: VENLAFAXINE HYDROCHLORIDE
     Indication: CONGENITAL CYSTIC KIDNEY DISEASE
  3. RANITIDINE. [Suspect]
     Active Substance: RANITIDINE
     Indication: ANGIOEDEMA
  4. TOLVAPTAN [Concomitant]
     Active Substance: TOLVAPTAN
     Indication: CONGENITAL CYSTIC KIDNEY DISEASE
  5. EPINEPHRINE. [Suspect]
     Active Substance: EPINEPHRINE
     Indication: ANGIOEDEMA
  6. LISINOPRIL. [Suspect]
     Active Substance: LISINOPRIL
     Indication: CONGENITAL CYSTIC KIDNEY DISEASE
     Route: 048
  7. ALLOPURINOL. [Concomitant]
     Active Substance: ALLOPURINOL
     Indication: CONGENITAL CYSTIC KIDNEY DISEASE
  8. AMLODIPINE BESILATE [Suspect]
     Active Substance: AMLODIPINE BESYLATE
     Indication: PRODUCT USED FOR UNKNOWN INDICATION
  9. PRINIVIL [Suspect]
     Active Substance: LISINOPRIL
     Indication: PRODUCT USED FOR UNKNOWN INDICATION

REACTIONS (6)
  - Dysarthria [Recovered/Resolved]
  - Drug ineffective [Unknown]
  - Eyelid oedema [Recovered/Resolved]
  - Tongue oedema [Recovered/Resolved]
  - Face oedema [Recovered/Resolved]
  - Angioedema [Recovered/Resolved]
